FAERS Safety Report 4978969-6 (Version None)
Quarter: 2006Q2

REPORT INFORMATION
  Report Type: 
  Country: None (occurrence: None)
  Receive Date: 20060419
  Receipt Date: 20060419
  Transmission Date: 20061013
  Serious: Yes (Other)
  Sender: FDA-Public Use
  Company Number: None

PATIENT
  Age: 55 Year
  Sex: Female
  Weight: 86.1834 kg

DRUGS (1)
  1. TOPAMAX [Suspect]
     Indication: MIGRAINE
     Dosage: 25 MG   HS    INJ
     Dates: start: 20060306, end: 20060415

REACTIONS (5)
  - ANGER [None]
  - ANHEDONIA [None]
  - DECREASED ACTIVITY [None]
  - HOSTILITY [None]
  - SOMNOLENCE [None]
